FAERS Safety Report 4341881-X (Version None)
Quarter: 2004Q2

REPORT INFORMATION
  Report Type: 
  Country: None (occurrence: None)
  Receive Date: 20040415
  Receipt Date: 20040329
  Transmission Date: 20050107
  Serious: Yes (Other)
  Sender: FDA-Public Use
  Company Number: USA040363451

PATIENT
  Age: 30 Year
  Sex: Male

DRUGS (6)
  1. ZYPREXA [Suspect]
     Indication: SCHIZOAFFECTIVE DISORDER
     Dosage: 30 MG DAY
     Dates: start: 19960101
  2. PROZAC [Suspect]
     Indication: MAJOR DEPRESSION
     Dosage: 40 MG DAY
  3. TOFRANIL [Concomitant]
  4. PREVACID [Concomitant]
  5. PHENERGAN [Concomitant]
  6. GEODON [Concomitant]

REACTIONS (7)
  - BLADDER CANCER [None]
  - DEPENDENCE [None]
  - DIABETES MELLITUS [None]
  - ENURESIS [None]
  - POST PROCEDURAL COMPLICATION [None]
  - SLEEP APNOEA SYNDROME [None]
  - WEIGHT INCREASED [None]
